FAERS Safety Report 5905756-4 (Version None)
Quarter: 2008Q4

REPORT INFORMATION
  Report Type: 
  Country: None (occurrence: None)
  Receive Date: 20081002
  Receipt Date: 20080930
  Transmission Date: 20090506
  Serious: Yes (Life-Threatening, Hospitalization)
  Sender: FDA-Public Use
  Company Number: A0685112A

PATIENT
  Age: 53 Year
  Sex: Female
  Weight: 65.9 kg

DRUGS (3)
  1. IMITREX [Suspect]
     Indication: MIGRAINE
     Dosage: 6MG AS REQUIRED
     Route: 058
     Dates: start: 19920101, end: 20070919
  2. AMITRIPTYLINE HCL [Concomitant]
     Dosage: 30MG AT NIGHT
  3. RABEPRAZOLE SODIUM [Concomitant]
     Dosage: 20MG PER DAY

REACTIONS (9)
  - ABASIA [None]
  - ACUTE MYOCARDIAL INFARCTION [None]
  - CARDIAC DISORDER [None]
  - CARDIAC VALVE DISEASE [None]
  - CHEST DISCOMFORT [None]
  - CHEST PAIN [None]
  - HYPOAESTHESIA [None]
  - HYPOAESTHESIA FACIAL [None]
  - MOVEMENT DISORDER [None]
